FAERS Safety Report 16560977 (Version 3)
Quarter: 2020Q2

REPORT INFORMATION
  Report Type: Spontaneous
  Country: US (occurrence: US)
  Receive Date: 20190711
  Receipt Date: 20200520
  Transmission Date: 20200713
  Serious: No
  Sender: FDA-Public Use
  Company Number: US-SA-2019SA187234

PATIENT
  Age: 53 Year
  Sex: Female

DRUGS (1)
  1. DUPIXENT [Suspect]
     Active Substance: DUPILUMAB
     Indication: CHRONIC OBSTRUCTIVE PULMONARY DISEASE
     Dosage: 300 MG, QOW
     Route: 058
     Dates: start: 20190521

REACTIONS (5)
  - Product use in unapproved indication [Unknown]
  - Eye disorder [Unknown]
  - Product dose omission [Unknown]
  - Tongue ulceration [Unknown]
  - Arthralgia [Unknown]
